FAERS Safety Report 10381612 (Version 1)
Quarter: 2014Q1

REPORT INFORMATION
  Report Type: Spontaneous
  Country: US (occurrence: None)
  Receive Date: 20140306
  Receipt Date: 20140306
  Transmission Date: 20141002
  Serious: Yes (Hospitalization, Other)
  Sender: FDA-Public Use
  Company Number: 163-21880-13023781

PATIENT
  Age: 58 Year
  Sex: Male
  Weight: 98.88 kg

DRUGS (9)
  1. REVLIMID [Suspect]
     Indication: PLASMA CELL MYELOMA
     Route: 048
     Dates: start: 20110921
  2. ASPIR-TRIN (ACETYLSALICYLIC ACID) (TABLETS) [Concomitant]
  3. CITALOPRAM HBR (CITALOPRAM HYDROBROMIDE) (UNKNOWN) [Concomitant]
  4. GABAPENTIN (GABAPENTIN) (UNKNOWN) (GABAPENTIN) [Concomitant]
  5. LYRICA (PREGABALIN) (CAPSULES) [Concomitant]
  6. MAGNESIUM (MAGNESIUM) (UNKNOWN) [Concomitant]
  7. PRILOSEC (OMEPRAZOLE) (CAPSULES) [Concomitant]
  8. REGLAN (METOCLOPRAMIDE) (TABLETS) [Concomitant]
  9. VITAMIN D (ERGOCALCIFEROL) (UNKNOWN) [Concomitant]

REACTIONS (2)
  - Hypersensitivity [None]
  - Muscle spasms [None]
